FAERS Safety Report 5463942-4 (Version None)
Quarter: 2007Q3

REPORT INFORMATION
  Report Type: 
  Country: None (occurrence: None)
  Receive Date: 20070919
  Receipt Date: 20070910
  Transmission Date: 20080115
  Serious: Yes (Other)
  Sender: FDA-Public Use
  Company Number: MYVW-PR-0709S-0082

PATIENT
  Age: 54 Year
  Sex: Male

DRUGS (2)
  1. MYOVIEW [Suspect]
     Indication: DRUG USE FOR UNKNOWN INDICATION
     Dosage: 444 MBG, SINGLE DOSE, I.V.
     Route: 042
     Dates: start: 20070906, end: 20070906
  2. TECHNETIUM (TC99M) GENERATOR (MANF. UNKNOWN) (SODIUM PERTECHNETATE TC9 [Concomitant]

REACTIONS (6)
  - COLD SWEAT [None]
  - CONVULSION [None]
  - HYPERHIDROSIS [None]
  - INFUSION RELATED REACTION [None]
  - NAUSEA [None]
  - VOMITING [None]
